FAERS Safety Report 7929348-0 (Version None)
Quarter: 2011Q4

REPORT INFORMATION
  Report Type: 
  Country: None (occurrence: None)
  Receive Date: 20111121
  Receipt Date: 20111114
  Transmission Date: 20120403
  Serious: No
  Sender: FDA-Public Use
  Company Number: US-BIOGENIDEC-2011BI043558

PATIENT
  Age: 41 Year
  Sex: Female

DRUGS (1)
  1. TYSABRI [Suspect]
     Indication: MULTIPLE SCLEROSIS
     Route: 042
     Dates: start: 20071018

REACTIONS (6)
  - PAIN IN EXTREMITY [None]
  - ANGER [None]
  - STRESS [None]
  - MUSCULAR WEAKNESS [None]
  - ANXIETY [None]
  - DEPRESSION [None]
